FAERS Safety Report 7835659-X (Version None)
Quarter: 2011Q4

REPORT INFORMATION
  Report Type: 
  Country: None (occurrence: None)
  Receive Date: 20111024
  Receipt Date: 20111019
  Transmission Date: 20120403
  Serious: Yes (Death, Hospitalization)
  Sender: FDA-Public Use
  Company Number: PHEH2011US05581

PATIENT
  Sex: Female

DRUGS (3)
  1. ARALAST [Concomitant]
  2. IMMUNOGLOBULINS [Concomitant]
  3. TOBI [Suspect]
     Dosage: 300 MG, BID
     Dates: start: 20110629, end: 20110721

REACTIONS (3)
  - LUNG DISORDER [None]
  - FAILURE TO THRIVE [None]
  - DECREASED APPETITE [None]
